FAERS Safety Report 7812773-6 (Version None)
Quarter: 2011Q4

REPORT INFORMATION
  Report Type: 
  Country: None (occurrence: None)
  Receive Date: 20111013
  Receipt Date: 20110718
  Transmission Date: 20120403
  Serious: No
  Sender: FDA-Public Use
  Company Number: US-NOVEN-11US002824

PATIENT
  Sex: Male

DRUGS (4)
  1. OXYCODONE HCL [Concomitant]
     Indication: NEUROPATHY PERIPHERAL
  2. INSULIN [Concomitant]
     Indication: TYPE 1 DIABETES MELLITUS
     Dosage: UNK QID
     Route: 058
  3. FENTANYL [Suspect]
     Indication: NEUROPATHY PERIPHERAL
     Dosage: 100 UG/HR, UNK
     Route: 062
     Dates: start: 20110401
  4. OXYCODONE HCL [Concomitant]
     Indication: PAIN
     Dosage: UNK
     Route: 048

REACTIONS (2)
  - PRODUCT QUALITY ISSUE [None]
  - INADEQUATE ANALGESIA [None]
